FAERS Safety Report 5081866-1 (Version None)
Quarter: 2006Q3

REPORT INFORMATION
  Report Type: 
  Country: None (occurrence: None)
  Receive Date: 20060816
  Receipt Date: 20060720
  Transmission Date: 20061208
  Serious: No
  Sender: FDA-Public Use
  Company Number: FR-ABBOTT-06P-056-0338487-00

PATIENT
  Sex: Female
  Weight: 84 kg

DRUGS (10)
  1. DEPAKOTE [Suspect]
     Indication: BIPOLAR DISORDER
     Route: 048
     Dates: start: 20060601, end: 20060601
  2. DEPAKOTE [Suspect]
     Route: 048
     Dates: start: 20060609
  3. OLANZAPINE [Suspect]
     Indication: BIPOLAR DISORDER
     Route: 048
     Dates: start: 20060601
  4. CYAMEMAZINE [Concomitant]
     Indication: INSOMNIA
     Route: 048
  5. OXAZEPAM [Concomitant]
     Indication: INSOMNIA
     Route: 048
  6. OMEPRAZOLE [Concomitant]
     Indication: GASTROOESOPHAGEAL REFLUX DISEASE
     Route: 048
  7. NULYTELY [Concomitant]
     Indication: CONSTIPATION
     Route: 048
  8. VELITEN [Concomitant]
     Indication: VENOUS INSUFFICIENCY
     Route: 048
  9. DIURETICS [Concomitant]
     Indication: CARDIAC FAILURE
     Dates: start: 20060601
  10. ANETHOLE TRITHIONE [Concomitant]
     Indication: DRY MOUTH
     Route: 048

REACTIONS (13)
  - ATRIAL HYPERTROPHY [None]
  - CARDIAC MURMUR [None]
  - DYSPNOEA [None]
  - DYSPNOEA EXERTIONAL [None]
  - GAMMA-GLUTAMYLTRANSFERASE INCREASED [None]
  - HEPATIC PAIN [None]
  - HEPATOJUGULAR REFLUX [None]
  - HEPATOMEGALY [None]
  - HYPONATRAEMIA [None]
  - OEDEMA PERIPHERAL [None]
  - RALES [None]
  - VENTRICULAR HYPERTROPHY [None]
  - WEIGHT INCREASED [None]
